FAERS Safety Report 17850497 (Version 1)
Quarter: 2020Q2

REPORT INFORMATION
  Report Type: Spontaneous
  Country: CN (occurrence: CN)
  Receive Date: 20200602
  Receipt Date: 20200602
  Transmission Date: 20200714
  Serious: Yes (Other)
  Sender: FDA-Public Use
  Company Number: CN-BAYER-2020-100056

PATIENT
  Age: 63 Year
  Sex: Female

DRUGS (1)
  1. GLUCOBAY [Suspect]
     Active Substance: ACARBOSE
     Indication: BLOOD GLUCOSE INCREASED
     Dosage: 1 DF, TID
     Route: 048
     Dates: start: 20200507, end: 20200507

REACTIONS (2)
  - Monoplegia [Recovering/Resolving]
  - Diabetes mellitus inadequate control [None]

NARRATIVE: CASE EVENT DATE: 20200507
